FAERS Safety Report 4880349-9 (Version None)
Quarter: 2006Q1

REPORT INFORMATION
  Report Type: 
  Country: None (occurrence: None)
  Receive Date: 20060111
  Receipt Date: 20051230
  Transmission Date: 20060701
  Serious: Yes (Disabling, Other)
  Sender: FDA-Public Use
  Company Number: 2005152248

PATIENT
  Sex: Male
  Weight: 95.2554 kg

DRUGS (4)
  1. VIAGRA [Suspect]
     Indication: ERECTILE DYSFUNCTION
     Dosage: 50 MG (50 MG, 1 AS NECESSARY), ORAL
     Route: 048
     Dates: end: 20050801
  2. PRINZIDE [Concomitant]
  3. LIPITOR [Concomitant]
  4. PROTONIX [Concomitant]

REACTIONS (10)
  - CATARACT [None]
  - DRUG INEFFECTIVE [None]
  - EYE DISORDER [None]
  - MACULAR DEGENERATION [None]
  - MACULAR SCAR [None]
  - MACULOPATHY [None]
  - RETINAL ANOMALY CONGENITAL [None]
  - RETINAL DEGENERATION [None]
  - RETINITIS PIGMENTOSA [None]
  - VISION BLURRED [None]
